FAERS Safety Report 24883077 (Version 3)
Quarter: 2025Q1

REPORT INFORMATION
  Report Type: Spontaneous
  Country: US (occurrence: US)
  Receive Date: 20250124
  Receipt Date: 20250222
  Transmission Date: 20250408
  Serious: Yes (Hospitalization, Disabling)
  Sender: AMGEN
  Company Number: US-AMGEN-USASP2025014279

PATIENT
  Age: 5 Year
  Sex: Female

DRUGS (2)
  1. PROCYSBI [Suspect]
     Active Substance: CYSTEAMINE BITARTRATE
     Indication: Cystinosis
     Dosage: 550 MILLIGRAM, Q12H
     Route: 048
     Dates: start: 202212
  2. PROCYSBI [Suspect]
     Active Substance: CYSTEAMINE BITARTRATE
     Route: 048

REACTIONS (2)
  - Laboratory test abnormal [Unknown]
  - Influenza [Unknown]
